FAERS Safety Report 17201775 (Version 1)
Quarter: 2019Q4

REPORT INFORMATION
  Report Type: Spontaneous
  Country: US (occurrence: US)
  Receive Date: 20191203
  Receipt Date: 20191203
  Transmission Date: 20200122
  Serious: Yes (Death)
  Sender: FDA-Public Use
  Company Number: None

PATIENT
  Age: 56 Year
  Sex: Male
  Weight: 87.8 kg

DRUGS (10)
  1. CARIPRAZINE 3MG [Suspect]
     Active Substance: CARIPRAZINE
     Indication: SCHIZOAFFECTIVE DISORDER
     Route: 048
     Dates: start: 20170302, end: 20191006
  2. BISACODYL. [Concomitant]
     Active Substance: BISACODYL
  3. CALCIUM CARBONATE. [Concomitant]
     Active Substance: CALCIUM CARBONATE
  4. CLOZAPINE 100MG [Suspect]
     Active Substance: CLOZAPINE
     Indication: SCHIZOAFFECTIVE DISORDER
     Dosage: MANY YEARS
     Route: 048
  5. CLOZAPINE 100MG [Suspect]
     Active Substance: CLOZAPINE
     Indication: BIPOLAR DISORDER
     Dosage: MANY YEARS
     Route: 048
  6. LACTULOSE SOLUTION [Concomitant]
     Active Substance: LACTULOSE
  7. CARIPRAZINE 3MG [Suspect]
     Active Substance: CARIPRAZINE
     Indication: BIPOLAR DISORDER
     Route: 048
     Dates: start: 20170302, end: 20191006
  8. DOCUSATE SODIUM. [Concomitant]
     Active Substance: DOCUSATE SODIUM
  9. LEVOTHYROXINE. [Concomitant]
     Active Substance: LEVOTHYROXINE
  10. LITHIUM CARBONATE. [Concomitant]
     Active Substance: LITHIUM CARBONATE

REACTIONS (19)
  - Sunburn [None]
  - Vital functions abnormal [None]
  - Sleep disorder [None]
  - Unresponsive to stimuli [None]
  - Respiratory failure [None]
  - Seizure [None]
  - Head injury [None]
  - Mania [None]
  - Fall [None]
  - Fatigue [None]
  - Psychomotor hyperactivity [None]
  - Neuroleptic malignant syndrome [None]
  - Pneumonia aspiration [None]
  - Catatonia [None]
  - Mental disorder [None]
  - Patient uncooperative [None]
  - Rhabdomyolysis [None]
  - Hyperthermia [None]
  - Acute kidney injury [None]

NARRATIVE: CASE EVENT DATE: 20190906
